FAERS Safety Report 11512077 (Version 1)
Quarter: 2015Q3

REPORT INFORMATION
  Report Type: Spontaneous
  Country: US (occurrence: US)
  Receive Date: 20150916
  Receipt Date: 20150916
  Transmission Date: 20151125
  Serious: No
  Sender: FDA-Public Use
  Company Number: US-ASTRAZENECA-2015SE86221

PATIENT
  Sex: Female
  Weight: 78 kg

DRUGS (2)
  1. SYNTHROID [Concomitant]
     Active Substance: LEVOTHYROXINE SODIUM
     Indication: HYPOTHYROIDISM
     Route: 048
  2. SYMBICORT [Suspect]
     Active Substance: BUDESONIDE\FORMOTEROL FUMARATE DIHYDRATE
     Indication: CHRONIC OBSTRUCTIVE PULMONARY DISEASE
     Dosage: 80/4.5 2 PUFFS TWICE DAILY
     Route: 055
     Dates: start: 20150825, end: 20150827

REACTIONS (7)
  - Heart rate irregular [Recovered/Resolved]
  - Muscle spasms [Recovered/Resolved]
  - Tremor [Recovered/Resolved]
  - Abdominal discomfort [Recovered/Resolved]
  - Insomnia [Recovered/Resolved]
  - Palpitations [Recovered/Resolved]
  - Paraesthesia [Recovered/Resolved]
